FAERS Safety Report 13452075 (Version 1)
Quarter: 2017Q2

REPORT INFORMATION
  Report Type: Spontaneous
  Country: RU (occurrence: RU)
  Receive Date: 20170418
  Receipt Date: 20170418
  Transmission Date: 20170830
  Serious: Yes (Death, Life-Threatening)
  Sender: FDA-Public Use
  Company Number: RU-CELGENEUS-RUS-20170401724

PATIENT
  Age: 69 Year
  Sex: Male
  Weight: 92 kg

DRUGS (8)
  1. REVLIMID [Suspect]
     Active Substance: LENALIDOMIDE
     Indication: PLASMA CELL MYELOMA
     Dosage: 10 MILLIGRAM
     Route: 048
     Dates: start: 20141209, end: 20150510
  2. DEXAMETHASONE ORAL [Suspect]
     Active Substance: DEXAMETHASONE
     Indication: PLASMA CELL MYELOMA
     Dosage: 40 MILLIGRAM
     Route: 048
     Dates: start: 20141209, end: 20160511
  3. LESPEFLAN [Concomitant]
     Indication: RENAL FAILURE
     Dosage: NOT PROVIDED
     Route: 065
  4. TROMBO ASS [Concomitant]
     Indication: THROMBOSIS
     Dosage: 50 MILLIGRAM
     Route: 048
     Dates: start: 20141209
  5. ENTEROSGEL [Concomitant]
     Indication: RENAL FAILURE
     Dosage: 45 MILLIGRAM
     Route: 048
     Dates: start: 201407
  6. NOLIPREL FORTE [Concomitant]
     Indication: ESSENTIAL HYPERTENSION
     Route: 048
     Dates: start: 201409
  7. OMEPRAZOLUM [Concomitant]
     Indication: GASTRIC DISORDER
     Dosage: 40 MILLIGRAM
     Route: 048
     Dates: start: 20141209
  8. OMEPRAZOLUM [Concomitant]
     Indication: PROPHYLAXIS

REACTIONS (1)
  - Coronary artery insufficiency [Fatal]

NARRATIVE: CASE EVENT DATE: 20160512
